FAERS Safety Report 24416031 (Version 1)
Quarter: 2024Q4

REPORT INFORMATION
  Report Type: Spontaneous
  Country: FR (occurrence: FR)
  Receive Date: 20241009
  Receipt Date: 20241009
  Transmission Date: 20250115
  Serious: Yes (Disabling, Other)
  Sender: AUROBINDO
  Company Number: FR-AFSSAPS-BS2024000136

PATIENT
  Age: 55 Year
  Sex: Female
  Weight: 99 kg

DRUGS (6)
  1. ZOLEDRONIC ACID [Suspect]
     Active Substance: ZOLEDRONIC ACID
     Indication: Osteoporosis
     Dosage: 5 MILLIGRAM (5 MG DOSE EVERY 1)
     Route: 042
     Dates: start: 202204, end: 20240415
  2. DUPIXENT [Suspect]
     Active Substance: DUPILUMAB
     Indication: Asthma
     Dosage: 200 MILLIGRAM (200 MG, QOW, START DATE: ??-APR-2022)
     Route: 058
     Dates: start: 20220401, end: 20231113
  3. DUPIXENT [Suspect]
     Active Substance: DUPILUMAB
     Dosage: 400 MILLIGRAM (400 MG, QOW)
     Route: 058
     Dates: start: 20220407
  4. MEPOLIZUMAB [Concomitant]
     Active Substance: MEPOLIZUMAB
     Indication: Product used for unknown indication
     Dosage: UNK
     Route: 065
  5. OMALIZUMAB [Concomitant]
     Active Substance: OMALIZUMAB
     Indication: Product used for unknown indication
     Dosage: 5 MILLIGRAM
     Route: 042
     Dates: start: 2018, end: 202304
  6. TEZEPELUMAB [Concomitant]
     Active Substance: TEZEPELUMAB
     Indication: Asthma
     Dosage: 210 MILLIGRAM (210 MG, Q4W)
     Route: 042
     Dates: start: 20231113

REACTIONS (11)
  - Pulmonary sarcoidosis [Recovering/Resolving]
  - Erythema nodosum [Recovering/Resolving]
  - Hypoxia [Recovering/Resolving]
  - General physical health deterioration [Recovering/Resolving]
  - Arthralgia [Recovering/Resolving]
  - Dry eye [Recovering/Resolving]
  - Dry mouth [Recovering/Resolving]
  - Asthenia [Recovering/Resolving]
  - Decreased appetite [Recovering/Resolving]
  - Weight decreased [Recovering/Resolving]
  - Incorrect dose administered [Unknown]

NARRATIVE: CASE EVENT DATE: 20230415
